FAERS Safety Report 13145281 (Version 2)
Quarter: 2017Q2

REPORT INFORMATION
  Report Type: Report from Study
  Country: US (occurrence: US)
  Receive Date: 20170124
  Receipt Date: 20170418
  Transmission Date: 20170830
  Serious: Yes (Hospitalization)
  Sender: FDA-Public Use
  Company Number: US-EISAI MEDICAL RESEARCH-EC-2017-024231

PATIENT
  Age: 68 Year
  Sex: Male
  Weight: 73 kg

DRUGS (22)
  1. LENVATINIB [Suspect]
     Active Substance: LENVATINIB
     Indication: ANAPLASTIC THYROID CANCER
     Route: 048
     Dates: start: 20161103, end: 20170119
  2. LENVATINIB [Suspect]
     Active Substance: LENVATINIB
     Route: 048
     Dates: start: 20170126, end: 20170213
  3. OXYCODONE [Concomitant]
     Active Substance: OXYCODONE
  4. BIOTIN [Concomitant]
     Active Substance: BIOTIN
  5. CLOTRIMAZOLE. [Concomitant]
     Active Substance: CLOTRIMAZOLE
  6. ECONAZOLE [Concomitant]
     Active Substance: ECONAZOLE
  7. LEVOTHYROXINE. [Concomitant]
     Active Substance: LEVOTHYROXINE
  8. MULTIVITAMINS [Concomitant]
     Active Substance: VITAMINS
  9. ACETAMINOPHEN. [Concomitant]
     Active Substance: ACETAMINOPHEN
  10. ASPIRIN. [Concomitant]
     Active Substance: ASPIRIN
  11. CALCIUMCARB-CHOLECALCIFEROL [Concomitant]
  12. FOLIC ACID. [Concomitant]
     Active Substance: FOLIC ACID
  13. LIDOCAINE. [Concomitant]
     Active Substance: LIDOCAINE
  14. LORATADINE. [Concomitant]
     Active Substance: LORATADINE
  15. LOSARTAN. [Concomitant]
     Active Substance: LOSARTAN
  16. POLYETHYLENE GLYCOL [Concomitant]
     Active Substance: POLYETHYLENE GLYCOLS
  17. AMLODIPINE [Concomitant]
     Active Substance: AMLODIPINE BESYLATE
  18. CALCITROL [Concomitant]
     Active Substance: CALCITRIOL
  19. CYANOCOBALAMIN. [Concomitant]
     Active Substance: CYANOCOBALAMIN
  20. OMEGA 3 [Concomitant]
     Active Substance: OMEGA-3 FATTY ACIDS
  21. GABAPENTIN. [Concomitant]
     Active Substance: GABAPENTIN
  22. NYSTATIN-TRIAMCINOLONE [Concomitant]

REACTIONS (2)
  - Corona virus infection [Recovering/Resolving]
  - Pulmonary embolism [Recovered/Resolved]

NARRATIVE: CASE EVENT DATE: 20170119
